FAERS Safety Report 4620863-4 (Version None)
Quarter: 2005Q1

REPORT INFORMATION
  Report Type: 
  Country: None (occurrence: None)
  Receive Date: 20050325
  Receipt Date: 20050311
  Transmission Date: 20050727
  Serious: Yes (Other)
  Sender: FDA-Public Use
  Company Number: 2005UW02611

PATIENT
  Age: 77 Year
  Sex: Male

DRUGS (6)
  1. CRESTOR [Suspect]
     Dates: start: 20040701
  2. TOPROL-XL [Concomitant]
  3. ASPIRIN [Concomitant]
  4. VITAMIN C [Concomitant]
  5. SELENIUM TRACE METAL ADDITIVE [Concomitant]
  6. FISH OIL [Concomitant]

REACTIONS (8)
  - AMNESIA [None]
  - ARTHRALGIA [None]
  - BACK PAIN [None]
  - BLOOD PRESSURE INCREASED [None]
  - CALCULUS URETERIC [None]
  - HALLUCINATION [None]
  - PAIN IN EXTREMITY [None]
  - RENAL PAIN [None]
